FAERS Safety Report 9888676 (Version 3)
Quarter: 2014Q2

REPORT INFORMATION
  Report Type: Report from Study
  Country: US (occurrence: US)
  Receive Date: 20140211
  Receipt Date: 20140424
  Transmission Date: 20141212
  Serious: Yes (Death, Hospitalization)
  Sender: FDA-Public Use
  Company Number: US-ACTELION-A-US2013-86684

PATIENT
  Age: 54 Year
  Sex: Female

DRUGS (13)
  1. VELETRI [Suspect]
     Indication: PULMONARY ARTERIAL HYPERTENSION
     Dosage: 26 NG/KG, PER MIN
     Route: 042
     Dates: start: 20130418
  2. SILDENAFIL [Concomitant]
  3. LASIX [Concomitant]
  4. K-TAB [Concomitant]
  5. SINEQUAN [Concomitant]
  6. AMIODARONE [Concomitant]
  7. ATROVENT [Concomitant]
  8. ALBUTEROL [Concomitant]
  9. DIGOXIN [Concomitant]
  10. DILTIAZEM [Concomitant]
  11. PRILOSEC [Concomitant]
  12. SPIRONOLACTONE [Concomitant]
  13. WARFARIN [Concomitant]

REACTIONS (9)
  - Staphylococcal sepsis [Fatal]
  - Pyrexia [Fatal]
  - Chills [Fatal]
  - Blood culture positive [Fatal]
  - Device related infection [Fatal]
  - Dyspnoea [Unknown]
  - Dermatitis [Recovered/Resolved]
  - Dermatitis contact [Recovered/Resolved]
  - Catheter site rash [Unknown]
